FAERS Safety Report 5316313-5 (Version None)
Quarter: 2007Q2

REPORT INFORMATION
  Report Type: 
  Country: None (occurrence: None)
  Receive Date: 20070430
  Receipt Date: 20070413
  Transmission Date: 20071010
  Serious: Yes (Other)
  Sender: FDA-Public Use
  Company Number: DSA_2564_2007

PATIENT
  Sex: Female

DRUGS (1)
  1. EFLORNITHINE HYDROCHLORIDE [Suspect]
     Dosage: TOPICAL
     Route: 061

REACTIONS (2)
  - ANGIOEDEMA [None]
  - DRUG HYPERSENSITIVITY [None]
